FAERS Safety Report 11797428 (Version 1)
Quarter: 2015Q4

REPORT INFORMATION
  Report Type: Spontaneous
  Country: US (occurrence: None)
  Receive Date: 20151202
  Receipt Date: 20151202
  Transmission Date: 20160305
  Serious: No
  Sender: FDA-Public Use
  Company Number: None

PATIENT
  Age: 30 Year
  Sex: Female
  Weight: 63.5 kg

DRUGS (4)
  1. BUPROPION XL 300 MG ACTAVIS [Suspect]
     Active Substance: BUPROPION
     Indication: DEPRESSION
     Dosage: TAKEN BY MOUTH
     Dates: start: 20150515, end: 20151201
  2. BUPROPION XL 300 MG ACTAVIS [Suspect]
     Active Substance: BUPROPION
     Indication: SMOKING CESSATION THERAPY
     Dosage: TAKEN BY MOUTH
     Dates: start: 20150515, end: 20151201
  3. PRENATAL  VITAMINS [Concomitant]
     Active Substance: VITAMINS
  4. BUPROPION XL [Concomitant]
     Active Substance: BUPROPION

REACTIONS (2)
  - Decreased appetite [None]
  - Alopecia [None]

NARRATIVE: CASE EVENT DATE: 20150815
